FAERS Safety Report 8439260-9 (Version None)
Quarter: 2012Q2

REPORT INFORMATION
  Report Type: 
  Country: None (occurrence: None)
  Receive Date: 20120615
  Receipt Date: 20120605
  Transmission Date: 20120825
  Serious: Yes (Death)
  Sender: FDA-Public Use
  Company Number: US-ASTELLAS-2012US004165

PATIENT
  Sex: Male

DRUGS (5)
  1. ALOXI [Concomitant]
     Indication: PROPHYLAXIS
     Dosage: 0.25 MG, UNKNOWN/D
     Route: 042
     Dates: start: 20111103
  2. ATIVAN [Concomitant]
     Indication: PROPHYLAXIS
     Dosage: 1 MG, UNKNOWN/D
     Route: 042
     Dates: start: 20111202
  3. TARCEVA [Suspect]
     Indication: PRODUCT USED FOR UNKNOWN INDICATION
     Dosage: UNK
     Route: 048
  4. GEMCITABINE [Concomitant]
     Indication: PRODUCT USED FOR UNKNOWN INDICATION
     Dosage: 1600 MG, UNKNOWN/D
     Route: 042
     Dates: start: 20111103
  5. DECADRON [Concomitant]
     Indication: PROPHYLAXIS
     Dosage: 10 MG, UID/QD
     Route: 042
     Dates: start: 20111103

REACTIONS (2)
  - DEATH [None]
  - DEHYDRATION [None]
